FAERS Safety Report 25744360 (Version 1)
Quarter: 2025Q3

REPORT INFORMATION
  Report Type: Spontaneous
  Country: US (occurrence: US)
  Receive Date: 20250901
  Receipt Date: 20250901
  Transmission Date: 20251020
  Serious: Yes (Hospitalization, Other)
  Sender: VELOXIS PHARMACEUTICALS
  Company Number: US-VELOXIS PHARMACEUTICALS, INC.-2025-VEL-00469

PATIENT
  Age: 61 Year

DRUGS (1)
  1. ENVARSUS XR [Suspect]
     Active Substance: TACROLIMUS
     Indication: Renal transplant

REACTIONS (5)
  - Coronary artery occlusion [Unknown]
  - Chest pain [Not Recovered/Not Resolved]
  - Chest discomfort [Not Recovered/Not Resolved]
  - Dyspnoea [Not Recovered/Not Resolved]
  - Dry throat [Unknown]
